FAERS Safety Report 11895240 (Version 3)
Quarter: 2016Q1

REPORT INFORMATION
  Report Type: Spontaneous
  Country: US (occurrence: US)
  Receive Date: 20160107
  Receipt Date: 20160202
  Transmission Date: 20160526
  Serious: Yes (Hospitalization)
  Sender: FDA-Public Use
  Company Number: US-PFIZER INC-2015476635

PATIENT
  Age: 52 Year
  Sex: Female

DRUGS (1)
  1. MS CONTIN [Suspect]
     Active Substance: MORPHINE SULFATE
     Indication: PAIN
     Dosage: 15 MG, 2X/DAY
     Route: 048
     Dates: start: 201409, end: 201410

REACTIONS (4)
  - Drug hypersensitivity [Unknown]
  - Drug level increased [Recovered/Resolved]
  - Hypoglycaemia [Recovered/Resolved]
  - Drug clearance decreased [Unknown]

NARRATIVE: CASE EVENT DATE: 20141031
